FAERS Safety Report 10435120 (Version 1)
Quarter: 2014Q3

REPORT INFORMATION
  Report Type: Spontaneous
  Country: US (occurrence: US)
  Receive Date: 20140907
  Receipt Date: 20140907
  Transmission Date: 20150326
  Serious: No
  Sender: FDA-Public Use
  Company Number: US-009507513-1408USA017252

PATIENT
  Age: 5 Year
  Sex: Female
  Weight: 27.21 kg

DRUGS (3)
  1. SINGULAIR [Suspect]
     Active Substance: MONTELUKAST SODIUM
     Indication: HYPERSENSITIVITY
  2. SINGULAIR [Suspect]
     Active Substance: MONTELUKAST SODIUM
     Indication: ASTHMA
     Dosage: DOSE/FREQUENCY: UNSPECIFIED
     Route: 048
     Dates: start: 2012
  3. FLONASE [Concomitant]
     Active Substance: FLUTICASONE PROPIONATE

REACTIONS (4)
  - Precocious puberty [Not Recovered/Not Resolved]
  - Puberty [Not Recovered/Not Resolved]
  - Premature ageing [Not Recovered/Not Resolved]
  - Skin odour abnormal [Not Recovered/Not Resolved]
